FAERS Safety Report 8850479 (Version 1)
Quarter: 2012Q4

REPORT INFORMATION
  Report Type: 
  Country: AU (occurrence: AU)
  Receive Date: 20121019
  Receipt Date: 20121019
  Transmission Date: 20130627
  Serious: Yes (Hospitalization)
  Sender: FDA-Public Use
  Company Number: AU-AMGEN-AUSCT2012066611

PATIENT
  Age: 76 Year
  Sex: Female
  Weight: 68.5 kg

DRUGS (12)
  1. DARBEPOETIN ALFA [Suspect]
     Indication: NEPHROGENIC ANAEMIA
     Dosage: 80 mug, qwk
     Route: 042
     Dates: start: 20101020
  2. VITAMIN C [Concomitant]
     Dosage: 500 mg, UNK
     Dates: start: 20100531
  3. ATENOLOL [Concomitant]
     Dosage: 50 mg, UNK
     Dates: start: 20100317, end: 20120602
  4. ATORVASTATIN CALCIUM [Concomitant]
     Dosage: 20 mg, UNK
     Dates: start: 20100317
  5. CALCITRIOL [Concomitant]
     Dosage: 0.125 mg, UNK
     Dates: start: 20100329
  6. CALCIUM CARBONATE [Concomitant]
     Dosage: 1200 mg, UNK
     Dates: start: 20100321
  7. FOLIC ACID [Concomitant]
     Dosage: 500 mg, UNK
     Dates: start: 20100331
  8. INSULIN [Concomitant]
     Dosage: UNK
     Dates: start: 20100317
  9. LERCANIDIPINE [Concomitant]
     Dosage: 20 mg, UNK
     Dates: start: 20100321, end: 20120602
  10. VITAMIN B NOS [Concomitant]
     Dosage: 1 DF, UNK
     Dates: start: 20100331
  11. PANTOPRAZOLE [Concomitant]
     Dosage: 40 mg, UNK
     Dates: start: 20100317
  12. PRAZOSIN [Concomitant]
     Dosage: 2 mg, UNK
     Dates: start: 20100317, end: 20100602

REACTIONS (1)
  - Atrial fibrillation [Unknown]
